FAERS Safety Report 6599878-5 (Version None)
Quarter: 2010Q1

REPORT INFORMATION
  Report Type: 
  Country: None (occurrence: None)
  Receive Date: 20100217
  Receipt Date: 20100202
  Transmission Date: 20100710
  Serious: Yes (Other)
  Sender: FDA-Public Use
  Company Number: TRP_06772_2010

PATIENT
  Sex: Male
  Weight: 77.1115 kg

DRUGS (13)
  1. INFERGEN [Suspect]
     Indication: HEPATITIS C
     Dosage: (15 UG QD SUBCUTANEOUS)
     Route: 058
     Dates: start: 20091218, end: 20100129
  2. RIBAVIRIN [Suspect]
     Indication: HEPATITIS C
     Dosage: (1000 MG, [400 MG QAM AND 600 MG QPM] ORAL)
     Route: 048
     Dates: start: 20091218, end: 20100129
  3. B12-VITAMIN [Concomitant]
  4. ADVAIR DISKUS 100/50 [Concomitant]
  5. DIAZEPAM [Concomitant]
  6. SYNTHROID [Concomitant]
  7. MOBIC [Concomitant]
  8. PROTONIX /01263201/ [Concomitant]
  9. ALBUTEROL [Concomitant]
  10. PROMETHAZINE [Concomitant]
  11. ZOLOFT [Concomitant]
  12. SOMA [Concomitant]
  13. MS CONTIN [Concomitant]

REACTIONS (11)
  - BALANCE DISORDER [None]
  - CONFUSIONAL STATE [None]
  - DECREASED APPETITE [None]
  - DIZZINESS [None]
  - FATIGUE [None]
  - FLUID INTAKE REDUCED [None]
  - HYPERSOMNIA [None]
  - NAUSEA [None]
  - PYREXIA [None]
  - VOMITING [None]
  - WEIGHT DECREASED [None]
